FAERS Safety Report 7129533-4 (Version None)
Quarter: 2010Q4

REPORT INFORMATION
  Report Type: 
  Country: None (occurrence: None)
  Receive Date: 20101130
  Receipt Date: 20101117
  Transmission Date: 20110411
  Serious: No
  Sender: FDA-Public Use
  Company Number: US-BIOGENIDEC-2010BI041156

PATIENT
  Sex: Male

DRUGS (1)
  1. TYSABRI [Suspect]
     Indication: MULTIPLE SCLEROSIS
     Route: 042
     Dates: start: 20060919, end: 20100901

REACTIONS (14)
  - BACK PAIN [None]
  - BALANCE DISORDER [None]
  - DRUG EFFECT DECREASED [None]
  - FATIGUE [None]
  - GAIT DISTURBANCE [None]
  - GLAUCOMA [None]
  - IMPAIRED WORK ABILITY [None]
  - INTRAOCULAR PRESSURE INCREASED [None]
  - INTRAOCULAR PRESSURE TEST ABNORMAL [None]
  - MEMORY IMPAIRMENT [None]
  - MUSCLE STRAIN [None]
  - MUSCLE TIGHTNESS [None]
  - MUSCULOSKELETAL PAIN [None]
  - NIGHT BLINDNESS [None]
